FAERS Safety Report 7578275-X (Version None)
Quarter: 2011Q2

REPORT INFORMATION
  Report Type: 
  Country: None (occurrence: None)
  Receive Date: 20110628
  Receipt Date: 20110621
  Transmission Date: 20111010
  Serious: Yes (Hospitalization)
  Sender: FDA-Public Use
  Company Number: US-JNJFOC-20110604344

PATIENT
  Sex: Male
  Weight: 68.49 kg

DRUGS (6)
  1. MULTIPLE MEDICATIONS UNSPECIFIED [Concomitant]
     Route: 065
  2. FENTANYL CITRATE [Suspect]
     Indication: ABDOMINAL PAIN
     Dosage: 25 PLUS 25 UG/HR
     Route: 062
     Dates: start: 20100101, end: 20100101
  3. UNKNOWN MEDICATION [Suspect]
     Indication: ABDOMINAL PAIN
     Route: 062
     Dates: start: 20110601
  4. DURAGESIC-100 [Suspect]
     Route: 062
     Dates: start: 20101001, end: 20110601
  5. DURAGESIC-100 [Suspect]
     Indication: ABDOMINAL PAIN
     Route: 062
     Dates: start: 20080101, end: 20100101
  6. DURAGESIC-100 [Suspect]
     Route: 062
     Dates: start: 20101001

REACTIONS (6)
  - INAPPROPRIATE SCHEDULE OF DRUG ADMINISTRATION [None]
  - WITHDRAWAL SYNDROME [None]
  - SUPRAVENTRICULAR EXTRASYSTOLES [None]
  - BLOOD PRESSURE FLUCTUATION [None]
  - HAEMORRHAGE [None]
  - PRODUCT ADHESION ISSUE [None]
